FAERS Safety Report 14372330 (Version 1)
Quarter: 2018Q1

REPORT INFORMATION
  Report Type: Spontaneous
  Country: US (occurrence: US)
  Receive Date: 20180109
  Receipt Date: 20180109
  Transmission Date: 20180509
  Serious: Yes (Hospitalization)
  Sender: FDA-Public Use
  Company Number: None

PATIENT
  Age: 66 Year
  Sex: Male

DRUGS (8)
  1. SMZ/TMP DS [Concomitant]
     Active Substance: SULFAMETHOXAZOLE\TRIMETHOPRIM
  2. SULFAMERAZIN [Concomitant]
  3. TAMSULIN [Concomitant]
  4. TACROLIMUS CAP 0.5 MG ACCORD [Suspect]
     Active Substance: TACROLIMUS
     Indication: LUNG TRANSPLANT
     Route: 048
     Dates: start: 20170425
  5. AZATHIOPRINE. [Concomitant]
     Active Substance: AZATHIOPRINE
  6. VALGANCICLOV [Concomitant]
  7. LATANOPROST. [Concomitant]
     Active Substance: LATANOPROST
  8. ACYCLOVIR. [Concomitant]
     Active Substance: ACYCLOVIR

REACTIONS (3)
  - Nephrolithiasis [None]
  - Drug dose omission [None]
  - White blood cell count decreased [None]

NARRATIVE: CASE EVENT DATE: 20180108
